FAERS Safety Report 5708982-2 (Version None)
Quarter: 2008Q2

REPORT INFORMATION
  Report Type: 
  Country: None (occurrence: None)
  Receive Date: 20080414
  Receipt Date: 20080414
  Transmission Date: 20081010
  Serious: Yes (Life-Threatening, Hospitalization, Other)
  Sender: FDA-Public Use
  Company Number: None

PATIENT
  Age: 48 Year
  Sex: Male
  Weight: 81.6475 kg

DRUGS (1)
  1. REQUIP [Suspect]
     Indication: RESTLESS LEGS SYNDROME
     Dosage: 6MG BEDTIME
     Dates: start: 20030411, end: 20070812

REACTIONS (12)
  - ALCOHOL ABUSE [None]
  - ALCOHOL POISONING [None]
  - DEPRESSION [None]
  - ECONOMIC PROBLEM [None]
  - FAMILY STRESS [None]
  - GAMBLING [None]
  - IMPAIRED DRIVING ABILITY [None]
  - IMPRISONMENT [None]
  - LOSS OF EMPLOYMENT [None]
  - MARITAL PROBLEM [None]
  - OBSESSIVE-COMPULSIVE DISORDER [None]
  - QUALITY OF LIFE DECREASED [None]
